FAERS Safety Report 4488127-X (Version None)
Quarter: 2004Q4

REPORT INFORMATION
  Report Type: 
  Country: None (occurrence: None)
  Receive Date: 20041022
  Receipt Date: 20041011
  Transmission Date: 20050328
  Serious: Yes (Hospitalization, Other)
  Sender: FDA-Public Use
  Company Number: HQWYE701811OCT04

PATIENT
  Age: 74 Year
  Sex: Female

DRUGS (7)
  1. PROPRANOLOL HYDROCHLORIDE [Suspect]
     Indication: VARICES OESOPHAGEAL
     Dosage: SEE IMAGE
     Route: 048
     Dates: start: 20020101, end: 20040401
  2. PROPRANOLOL HYDROCHLORIDE [Suspect]
     Indication: VARICES OESOPHAGEAL
     Dosage: SEE IMAGE
     Route: 048
     Dates: start: 20040401, end: 20040812
  3. PROPRANOLOL HYDROCHLORIDE [Suspect]
     Indication: VARICES OESOPHAGEAL
     Dosage: SEE IMAGE
     Route: 048
     Dates: start: 20040813, end: 20040814
  4. FOLIC ACID [Concomitant]
  5. POTASSIUM CHLORIDE [Concomitant]
  6. LSILIX (FUROSEMIDE) [Concomitant]
  7. ALDACTONE [Concomitant]

REACTIONS (2)
  - ASTHMA [None]
  - BRONCHITIS ACUTE [None]
